FAERS Safety Report 4661711-6 (Version None)
Quarter: 2005Q2

REPORT INFORMATION
  Report Type: 
  Country: None (occurrence: None)
  Receive Date: 20050512
  Receipt Date: 20050512
  Transmission Date: 20051028
  Serious: No
  Sender: FDA-Public Use
  Company Number: None

PATIENT
  Sex: Male
  Weight: 76 kg

DRUGS (2)
  1. CISPLATIN [Suspect]
     Dates: start: 20050427
  2. RADIATION [Suspect]

REACTIONS (4)
  - BLOOD POTASSIUM DECREASED [None]
  - HOT FLUSH [None]
  - LOSS OF CONSCIOUSNESS [None]
  - RENAL FAILURE [None]
